FAERS Safety Report 7065823-1 (Version None)
Quarter: 2010Q4

REPORT INFORMATION
  Report Type: 
  Country: None (occurrence: None)
  Receive Date: 20101027
  Receipt Date: 20101021
  Transmission Date: 20110411
  Serious: Yes (Death)
  Sender: FDA-Public Use
  Company Number: US-ELI_LILLY_AND_COMPANY-US201009001502

PATIENT
  Sex: Female

DRUGS (7)
  1. GEMZAR [Suspect]
     Indication: PANCREATIC CARCINOMA
     Dosage: 1600 MG, WEEKLY (1/W)
     Dates: start: 20090105, end: 20090501
  2. LANTUS [Concomitant]
  3. PANGESTYME [Concomitant]
  4. MEGACE ES [Concomitant]
  5. HYDROCODONE [Concomitant]
  6. PANTOPRAZOLE [Concomitant]
  7. TRIMETHOBENZAMIDE HCL [Concomitant]

REACTIONS (1)
  - DEATH [None]
